FAERS Safety Report 6160245-X (Version None)
Quarter: 2009Q2

REPORT INFORMATION
  Report Type: 
  Country: None (occurrence: None)
  Receive Date: 20090420
  Receipt Date: 20090414
  Transmission Date: 20091009
  Serious: Yes (Hospitalization)
  Sender: FDA-Public Use
  Company Number: B0569634A

PATIENT
  Age: 48 Year

DRUGS (13)
  1. ZIDOVUDINE [Suspect]
  2. LAMIVUDINE [Suspect]
  3. ACETYLSALICYLIC ACID SRT [Suspect]
  4. RAMIPRIL [Suspect]
  5. EFAVIRENZ [Suspect]
  6. DIDANOSINE [Suspect]
  7. STAVUDINE [Suspect]
  8. KALETRA [Suspect]
  9. TENOFOVIR [Suspect]
  10. NELFINAVIR [Suspect]
  11. ATORVASTATIN [Concomitant]
  12. PRAVASTATIN [Concomitant]
  13. OMEGA-3-ACID ETHYL ESTERS [Concomitant]

REACTIONS (2)
  - DRUG RESISTANCE [None]
  - MYOCARDIAL INFARCTION [None]
